FAERS Safety Report 8188993-0 (Version None)
Quarter: 2012Q1

REPORT INFORMATION
  Report Type: 
  Country: None (occurrence: None)
  Receive Date: 20120307
  Receipt Date: 20120227
  Transmission Date: 20120608
  Serious: Yes (Hospitalization)
  Sender: FDA-Public Use
  Company Number: US-BIOGENIDEC-2011BI024522

PATIENT
  Age: 17 Year
  Sex: Female

DRUGS (6)
  1. TYSABRI [Suspect]
     Indication: MULTIPLE SCLEROSIS
     Route: 042
     Dates: start: 20110218, end: 20110520
  2. PRILOSEC [Concomitant]
     Dates: start: 20110701
  3. COLACE [Concomitant]
     Dates: start: 20110801
  4. AMOXIL [Concomitant]
     Dates: start: 20111101, end: 20111101
  5. CALRITIN [Concomitant]
     Dates: start: 20110801
  6. MULTI-VITAMINS [Concomitant]

REACTIONS (3)
  - CERVIX DISORDER [None]
  - PREGNANCY [None]
  - PLACENTAL INFARCTION [None]
